FAERS Safety Report 7283218-2 (Version None)
Quarter: 2011Q1

REPORT INFORMATION
  Report Type: 
  Country: None (occurrence: None)
  Receive Date: 20110209
  Receipt Date: 20110127
  Transmission Date: 20110831
  Serious: Yes (Other)
  Sender: FDA-Public Use
  Company Number: PHHY2011EC04073

PATIENT
  Sex: Female

DRUGS (7)
  1. DIOVAN HCT [Suspect]
     Dosage: 160 MG OF VALS AND 25 MG OF HYD
     Dates: start: 20110117
  2. DIOVAN HCT [Suspect]
     Indication: HYPERTENSION
     Dosage: 160 MG OF VALS AND 25 MG OF HYD
     Route: 048
     Dates: start: 20091201
  3. DIOVAN HCT [Suspect]
     Dosage: 160 MG OF VALS AND 25 MG OF HYD
     Route: 048
     Dates: start: 20100201, end: 20110104
  4. MICARDIS [Concomitant]
  5. AMLODIPINE [Concomitant]
  6. LEVOTIROXINA [Concomitant]
  7. CALCIUM [Concomitant]

REACTIONS (5)
  - HYPOAESTHESIA [None]
  - BLOOD CALCIUM DECREASED [None]
  - HYPERTENSION [None]
  - MUSCLE SPASMS [None]
  - THYROID DISORDER [None]
